FAERS Safety Report 14824671 (Version 1)
Quarter: 2018Q2

REPORT INFORMATION
  Report Type: Report from Study
  Country: JP (occurrence: JP)
  Receive Date: 20180429
  Receipt Date: 20180429
  Transmission Date: 20180711
  Serious: Yes (Hospitalization)
  Sender: FDA-Public Use
  Company Number: JP-AMGEN-JPNCT2018056688

PATIENT
  Age: 72 Year
  Sex: Male
  Weight: 82 kg

DRUGS (13)
  1. CLENAFIN [Concomitant]
     Active Substance: EFINACONAZOLE
     Indication: TINEA PEDIS
     Dosage: UNK, AS NECESSARY
     Route: 061
     Dates: start: 20160112
  2. NIFEDIPINE. [Concomitant]
     Active Substance: NIFEDIPINE
     Indication: HYPERTENSION
     Dosage: 40 MG, QD
     Route: 048
     Dates: start: 20160218
  3. DEPRODONE PROPIONATE [Concomitant]
     Active Substance: DEPRODONE PROPIONATE
     Indication: DERMATITIS CONTACT
     Dosage: UNK, AS NECESSARY
     Route: 061
     Dates: start: 20161117
  4. MAXACALCITOL [Concomitant]
     Active Substance: MAXACALCITOL
     Indication: HYPERPARATHYROIDISM SECONDARY
     Dosage: 7.5 MUG, 3 TIMES/WK
     Route: 042
     Dates: start: 20161226
  5. CANDESARTAN. [Concomitant]
     Active Substance: CANDESARTAN
     Indication: HYPERTENSION
     Dosage: 6 MG, BID
     Route: 048
     Dates: start: 20150808
  6. FEBURIC [Concomitant]
     Active Substance: FEBUXOSTAT
     Indication: HYPERURICAEMIA
     Dosage: 10 MG, QD
     Route: 048
     Dates: start: 20160915
  7. INSULIN GLARGINE BS [Concomitant]
     Active Substance: INSULIN GLARGINE
     Indication: DIABETES MELLITUS
     Dosage: 10 IU, UNK
     Route: 058
     Dates: start: 20170713
  8. WHITE PETROLATUM [Concomitant]
     Active Substance: PETROLATUM
     Indication: DERMATITIS CONTACT
     Dosage: UNK, AS NECESSARY
     Route: 061
     Dates: start: 20161117
  9. PERSANTINE [Concomitant]
     Active Substance: DIPYRIDAMOLE
     Indication: NEPHROTIC SYNDROME
     Dosage: 150 MG, BID
     Route: 048
     Dates: start: 20150808
  10. CRESTOR [Concomitant]
     Active Substance: ROSUVASTATIN CALCIUM
     Indication: DYSLIPIDAEMIA
     Dosage: 5 MG, QD
     Route: 048
     Dates: start: 20150808
  11. NOVORAPID [Concomitant]
     Active Substance: INSULIN ASPART
     Indication: DIABETES MELLITUS
     Dosage: 24 IU, UNK
     Route: 058
     Dates: start: 20160823
  12. DARBEPOETIN ALFA - KHK [Suspect]
     Active Substance: DARBEPOETIN ALFA
     Indication: NEPHROGENIC ANAEMIA
     Dosage: 10 MUG, UNK
     Route: 042
     Dates: start: 20170327
  13. FLUITRAN [Concomitant]
     Active Substance: TRICHLORMETHIAZIDE
     Indication: HYPERTENSION
     Dosage: 1 MG, QD
     Route: 048
     Dates: start: 20150808

REACTIONS (1)
  - Atrioventricular block complete [Recovering/Resolving]

NARRATIVE: CASE EVENT DATE: 20170714
